FAERS Safety Report 5140546-4 (Version None)
Quarter: 2006Q4

REPORT INFORMATION
  Report Type: 
  Country: None (occurrence: None)
  Receive Date: 20061025
  Receipt Date: 20061011
  Transmission Date: 20070319
  Serious: Yes (Hospitalization)
  Sender: FDA-Public Use
  Company Number: US-2006-030417

PATIENT
  Age: 40 Year
  Sex: Female

DRUGS (2)
  1. BETASERON [Suspect]
     Indication: RELAPSING-REMITTING MULTIPLE SCLEROSIS
     Dosage: EVERY 2D, SUBCUTANEOUS; 4 MIU, EVERY 2D, SUBCUTANEOUS
     Route: 058
     Dates: start: 20030819, end: 20040503
  2. BETASERON [Suspect]
     Indication: RELAPSING-REMITTING MULTIPLE SCLEROSIS
     Dosage: EVERY 2D, SUBCUTANEOUS; 4 MIU, EVERY 2D, SUBCUTANEOUS
     Route: 058
     Dates: start: 20041011

REACTIONS (3)
  - HYPOTHYROIDISM [None]
  - VAGINAL HAEMORRHAGE [None]
  - WEIGHT INCREASED [None]
